FAERS Safety Report 7635477-1 (Version None)
Quarter: 2011Q3

REPORT INFORMATION
  Report Type: 
  Country: None (occurrence: None)
  Receive Date: 20110726
  Receipt Date: 20110726
  Transmission Date: 20111222
  Serious: Yes (Disabling)
  Sender: FDA-Public Use
  Company Number: None

PATIENT
  Age: 46 Year
  Sex: Female

DRUGS (2)
  1. ETODOLAC [Suspect]
     Indication: ANTIINFLAMMATORY THERAPY
     Dosage: 400MG
     Route: 048
     Dates: start: 20110511, end: 20110628
  2. ETODOLAC [Suspect]
     Indication: PAIN
     Dosage: 400MG
     Route: 048
     Dates: start: 20110511, end: 20110628

REACTIONS (1)
  - OEDEMA PERIPHERAL [None]
